FAERS Safety Report 17891558 (Version 2)
Quarter: 2020Q3

REPORT INFORMATION
  Report Type: Spontaneous
  Country: GB (occurrence: GB)
  Receive Date: 20200612
  Receipt Date: 20200904
  Transmission Date: 20201103
  Serious: Yes (Other)
  Sender: FDA-Public Use
  Company Number: GB-009507513-2006GBR004180

PATIENT
  Age: 54 Year
  Sex: Female

DRUGS (2)
  1. PEMBROLIZUMAB. [Suspect]
     Active Substance: PEMBROLIZUMAB
     Indication: METASTATIC MALIGNANT MELANOMA
     Dosage: UNK
     Dates: start: 2017, end: 2019
  2. NIVOLUMAB [Suspect]
     Active Substance: NIVOLUMAB
     Indication: METASTATIC MALIGNANT MELANOMA
     Dosage: FOR 2 YEARS
     Dates: start: 2017, end: 2019

REACTIONS (6)
  - Immune-mediated myositis [Recovered/Resolved]
  - Therapy non-responder [Unknown]
  - Malignant neoplasm progression [Unknown]
  - Gastrointestinal toxicity [Unknown]
  - Immune-mediated neuropathy [Recovered/Resolved with Sequelae]
  - Skin toxicity [Unknown]

NARRATIVE: CASE EVENT DATE: 2019
